FAERS Safety Report 11859968 (Version 3)
Quarter: 2016Q1

REPORT INFORMATION
  Report Type: Spontaneous
  Country: PR (occurrence: PR)
  Receive Date: 20151222
  Receipt Date: 20160224
  Transmission Date: 20160526
  Serious: No
  Sender: FDA-Public Use
  Company Number: PR-PFIZER INC-2015412578

PATIENT
  Age: 59 Year
  Sex: Female
  Weight: 90 kg

DRUGS (2)
  1. IBRANCE [Suspect]
     Active Substance: PALBOCICLIB
     Dosage: UNK
     Route: 048
  2. IBRANCE [Suspect]
     Active Substance: PALBOCICLIB
     Indication: BREAST CANCER FEMALE
     Dosage: 125 MG, DAILY
     Route: 048
     Dates: start: 20151110

REACTIONS (7)
  - Cough [Unknown]
  - Back pain [Unknown]
  - Platelet count decreased [Unknown]
  - Headache [Unknown]
  - Depression [Unknown]
  - Oropharyngeal pain [Unknown]
  - Haematoma [Unknown]

NARRATIVE: CASE EVENT DATE: 2015
